FAERS Safety Report 8300932-8 (Version None)
Quarter: 2012Q2

REPORT INFORMATION
  Report Type: 
  Country: None (occurrence: None)
  Receive Date: 20120420
  Receipt Date: 20120411
  Transmission Date: 20120825
  Serious: Yes (Hospitalization)
  Sender: FDA-Public Use
  Company Number: IT-BRISTOL-MYERS SQUIBB COMPANY-16093940

PATIENT
  Age: 64 Year
  Sex: Female

DRUGS (6)
  1. CORDARONE [Concomitant]
     Dosage: TABS
  2. SPIRONOLACTONE [Concomitant]
     Dosage: STRENGTH: 25 MG + 37 MG CAPS
     Route: 048
  3. RAMIPRIL [Concomitant]
     Dosage: STRNGTH: TRIATEC 10 MG TABS
     Route: 048
  4. SIMVASTATIN [Concomitant]
     Dosage: TABS
  5. COUMADIN [Suspect]
     Indication: ATRIAL FIBRILLATION
     Dosage: 1 DF = 1 UNIT.INTRP ON 19SEP11
     Dates: start: 20110826
  6. ALLOPURINOL [Concomitant]
     Dosage: STRENGTH: ZYLORIC 300 MG TABS
     Route: 048

REACTIONS (2)
  - HYPOTENSION [None]
  - STEVENS-JOHNSON SYNDROME [None]
